FAERS Safety Report 21836371 (Version 1)
Quarter: 2023Q1

REPORT INFORMATION
  Report Type: Spontaneous
  Country: US (occurrence: US)
  Receive Date: 20230109
  Receipt Date: 20230109
  Transmission Date: 20230418
  Serious: No
  Sender: FDA-Public Use
  Company Number: US-TERSERA THERAPEUTICS LLC-2022TRS003067

PATIENT

DRUGS (6)
  1. PRIALT [Suspect]
     Active Substance: ZICONOTIDE ACETATE
     Indication: Product used for unknown indication
     Dosage: 2.24868 MCG, QD (CONCENTRATION: 12.5 MCG)
     Route: 037
  2. PRIALT [Suspect]
     Active Substance: ZICONOTIDE ACETATE
     Dosage: 2.24868 MCG, QD (CONCENTRATION: 12.5 MCG)
     Route: 037
  3. CLONIDINE [Suspect]
     Active Substance: CLONIDINE
     Indication: Product used for unknown indication
     Dosage: 20.14819 MCG, QD (CONCENTRATION: 112 MCG)
     Route: 037
  4. CLONIDINE [Suspect]
     Active Substance: CLONIDINE
     Dosage: 29.8625 MCG, QD (CONCENTRATION: 166 MCG)
     Route: 037
  5. BACLOFEN [Suspect]
     Active Substance: BACLOFEN
     Indication: Product used for unknown indication
     Dosage: 449.736 MCG, QD (CONCENTRATION: 2500 MCG)
     Route: 037
  6. BACLOFEN [Suspect]
     Active Substance: BACLOFEN
     Dosage: 449.736 MCG, QD (CONCENTRATION: 2500 MCG)
     Route: 037

REACTIONS (2)
  - Oedema peripheral [Not Recovered/Not Resolved]
  - Off label use [Unknown]

NARRATIVE: CASE EVENT DATE: 20220516
